FAERS Safety Report 7899767-X (Version None)
Quarter: 2011Q4

REPORT INFORMATION
  Report Type: 
  Country: None (occurrence: None)
  Receive Date: 20111107
  Receipt Date: 20110919
  Transmission Date: 20120403
  Serious: No
  Sender: FDA-Public Use
  Company Number: US-AMGEN-USASP2011048248

PATIENT
  Sex: Male

DRUGS (1)
  1. ENBREL [Suspect]
     Indication: RHEUMATOID ARTHRITIS
     Dosage: 50 MG, QWK
     Dates: start: 20100201

REACTIONS (9)
  - HEADACHE [None]
  - INJECTION SITE IRRITATION [None]
  - SINUSITIS [None]
  - ABDOMINAL DISCOMFORT [None]
  - INJECTION SITE PAIN [None]
  - SINUS CONGESTION [None]
  - INJECTION SITE ERYTHEMA [None]
  - DIARRHOEA [None]
  - INJECTION SITE MASS [None]
